FAERS Safety Report 17566342 (Version 4)
Quarter: 2023Q1

REPORT INFORMATION
  Report Type: Spontaneous
  Country: CA (occurrence: CA)
  Receive Date: 20200320
  Receipt Date: 20230125
  Transmission Date: 20230418
  Serious: Yes (Hospitalization, Other)
  Sender: FDA-Public Use
  Company Number: CA-OTSUKA-2020_007562

PATIENT
  Sex: Male

DRUGS (32)
  1. ARIPIPRAZOLE [Suspect]
     Active Substance: ARIPIPRAZOLE
     Indication: Schizophrenia
     Dosage: 30 MG, UNK
     Route: 065
  2. AMISULPRIDE [Suspect]
     Active Substance: AMISULPRIDE
     Indication: Schizophrenia
     Dosage: 1200 MG, UNK
     Route: 065
  3. SAPHRIS [Suspect]
     Active Substance: ASENAPINE MALEATE
     Indication: Schizophrenia
     Dosage: UNK
     Route: 065
  4. CITALOPRAM [Suspect]
     Active Substance: CITALOPRAM HYDROBROMIDE
     Indication: Schizophrenia
     Dosage: 80 MG, UNK
     Route: 065
  5. CLOMIPRAMINE [Suspect]
     Active Substance: CLOMIPRAMINE
     Indication: Schizophrenia
     Dosage: 250 MG, UNK
     Route: 065
  6. CLOZAPINE [Suspect]
     Active Substance: CLOZAPINE
     Indication: Schizophrenia
     Dosage: 350 MG, UNK
     Route: 065
  7. FLUOXETINE HYDROCHLORIDE [Suspect]
     Active Substance: FLUOXETINE HYDROCHLORIDE
     Indication: Schizophrenia
     Dosage: 80 MG, UNK
     Route: 065
  8. FLUPENTIXOL [Suspect]
     Active Substance: FLUPENTIXOL
     Indication: Schizophrenia
     Dosage: 6 MG, UNK
     Route: 065
  9. GABAPENTIN [Suspect]
     Active Substance: GABAPENTIN
     Indication: Schizophrenia
     Dosage: 1800 MG
     Route: 065
  10. GABAPENTIN [Suspect]
     Active Substance: GABAPENTIN
     Dosage: 600 MG
     Route: 065
  11. GABAPENTIN [Suspect]
     Active Substance: GABAPENTIN
     Dosage: 1600 MG
     Route: 065
  12. HALOPERIDOL DECANOATE [Suspect]
     Active Substance: HALOPERIDOL DECANOATE
     Indication: Schizophrenia
     Dosage: 6 MG
     Route: 065
  13. HALOPERIDOL DECANOATE [Suspect]
     Active Substance: HALOPERIDOL DECANOATE
     Dosage: 5 MG, UNK
     Route: 030
  14. LITHIUM CARBONATE [Suspect]
     Active Substance: LITHIUM CARBONATE
     Indication: Schizophrenia
     Dosage: 1050 MG, UNK
     Route: 065
  15. LITHIUM CARBONATE [Suspect]
     Active Substance: LITHIUM CARBONATE
     Dosage: UNK
     Route: 065
  16. LITHIUM CARBONATE [Suspect]
     Active Substance: LITHIUM CARBONATE
     Dosage: 1800 MG
     Route: 065
  17. LITHIUM CARBONATE [Suspect]
     Active Substance: LITHIUM CARBONATE
     Dosage: 1500 MG
     Route: 065
  18. LOXAPINE SUCCINATE [Suspect]
     Active Substance: LOXAPINE SUCCINATE
     Indication: Schizophrenia
     Dosage: 50 MG, UNK
     Route: 065
  19. LOXAPINE SUCCINATE [Suspect]
     Active Substance: LOXAPINE SUCCINATE
     Dosage: 200 MG
     Route: 065
  20. LOXAPINE SUCCINATE [Suspect]
     Active Substance: LOXAPINE SUCCINATE
     Dosage: 75 MG
     Route: 065
  21. OLANZAPINE [Suspect]
     Active Substance: OLANZAPINE
     Indication: Schizophrenia
     Dosage: 15 MG, UNK
     Route: 065
  22. OLANZAPINE [Suspect]
     Active Substance: OLANZAPINE
     Dosage: 20 MG
     Route: 065
  23. OLANZAPINE [Suspect]
     Active Substance: OLANZAPINE
     Dosage: 40 MG
     Route: 065
  24. PERPHENAZINE [Suspect]
     Active Substance: PERPHENAZINE
     Indication: Schizophrenia
     Dosage: 32 MG
     Route: 065
  25. QUETIAPINE FUMARATE [Suspect]
     Active Substance: QUETIAPINE FUMARATE
     Indication: Schizophrenia
     Dosage: 600 MG, UNK
     Route: 048
  26. RISPERIDONE [Suspect]
     Active Substance: RISPERIDONE
     Indication: Schizophrenia
     Dosage: 3 MG, UNK
     Route: 065
  27. RISPERIDONE [Suspect]
     Active Substance: RISPERIDONE
     Dosage: 4 MG
     Route: 065
  28. RISPERIDONE [Suspect]
     Active Substance: RISPERIDONE
     Dosage: 8 MG
     Route: 065
  29. THIORIDAZINE [Suspect]
     Active Substance: THIORIDAZINE
     Indication: Schizophrenia
     Dosage: UNK
     Route: 048
  30. TRIFLUOPERAZINE [Suspect]
     Active Substance: TRIFLUOPERAZINE HYDROCHLORIDE
     Indication: Schizophrenia
     Dosage: 50 MG, UNK
     Route: 065
  31. ZELDOX [Suspect]
     Active Substance: ZIPRASIDONE
     Indication: Schizophrenia
     Dosage: 100 MG, UNK
     Route: 065
  32. VALPROATE SODIUM [Concomitant]
     Active Substance: VALPROATE SODIUM
     Indication: Schizophrenia
     Dosage: 1000 MG
     Route: 065

REACTIONS (13)
  - Antipsychotic drug level below therapeutic [Unknown]
  - Toxicity to various agents [Unknown]
  - Disinhibition [Unknown]
  - Obsessive-compulsive disorder [Unknown]
  - Euphoric mood [Unknown]
  - Increased appetite [Unknown]
  - Leukopenia [Unknown]
  - Akathisia [Unknown]
  - Suicide attempt [Unknown]
  - Weight increased [Unknown]
  - Therapeutic product effect variable [Unknown]
  - Therapeutic product effect incomplete [Unknown]
  - Drug ineffective [Unknown]
